FAERS Safety Report 14104070 (Version 1)
Quarter: 2017Q4

REPORT INFORMATION
  Report Type: Spontaneous
  Country: MX (occurrence: MX)
  Receive Date: 20171018
  Receipt Date: 20171018
  Transmission Date: 20180321
  Serious: Yes (Life-Threatening, Hospitalization, Other)
  Sender: FDA-Public Use
  Company Number: MX-LUPIN PHARMACEUTICALS INC.-2017-05993

PATIENT
  Age: 74 Year
  Sex: Male

DRUGS (3)
  1. GLIBENCLAMIDE [Concomitant]
     Active Substance: GLYBURIDE
     Indication: TYPE 2 DIABETES MELLITUS
     Dosage: 10 MG, QD
     Route: 065
  2. METFORMIN [Suspect]
     Active Substance: METFORMIN HYDROCHLORIDE
     Indication: TYPE 2 DIABETES MELLITUS
     Dosage: 850 MG, QD
     Route: 048
  3. METFORMIN [Suspect]
     Active Substance: METFORMIN HYDROCHLORIDE
     Dosage: 20 DF, UNK
     Route: 048

REACTIONS (9)
  - Multiple organ dysfunction syndrome [Unknown]
  - Suicide attempt [Unknown]
  - Acute kidney injury [Unknown]
  - Epistaxis [Unknown]
  - Hyperkalaemia [Unknown]
  - Hypoglycaemia [Unknown]
  - Intentional overdose [Unknown]
  - Toxicity to various agents [Unknown]
  - Lactic acidosis [Unknown]
